FAERS Safety Report 5977772-8 (Version None)
Quarter: 2008Q4

REPORT INFORMATION
  Report Type: 
  Country: None (occurrence: None)
  Receive Date: 20081203
  Receipt Date: 20081121
  Transmission Date: 20090506
  Serious: Yes (Hospitalization, Other)
  Sender: FDA-Public Use
  Company Number: FR-ELI_LILLY_AND_COMPANY-FR200811005048

PATIENT
  Sex: Male

DRUGS (11)
  1. UMULINE [Suspect]
     Indication: DIABETES MELLITUS
     Dosage: 5 IU, EACH MORNING
     Route: 058
     Dates: start: 20080101
  2. UMULINE [Suspect]
     Dosage: 8 IU AT NOON
     Route: 058
     Dates: start: 20080101
  3. UMULINE [Suspect]
     Dosage: 8 IU, EACH EVENING
     Route: 058
     Dates: start: 20080101
  4. UMULINE [Suspect]
     Dosage: 10 IU ONCE
     Route: 058
  5. AOTAL [Concomitant]
     Dosage: 333 MG SIX TIMES DAILY
     Route: 065
     Dates: start: 20070101
  6. CREON [Concomitant]
     Dosage: UNK, UNKNOWN
     Route: 065
     Dates: start: 20070101
  7. VALIUM [Concomitant]
     Dosage: 5 MG, 2/D
     Route: 065
     Dates: start: 20080101
  8. IMOVANE [Concomitant]
     Dosage: 7.5 MG, DAILY (1/D)
     Route: 065
     Dates: start: 20080101
  9. LANTUS [Concomitant]
     Indication: DIABETES MELLITUS
     Dosage: 10 IU, EACH MORNING
     Route: 058
  10. VITAMIN B1 TAB [Concomitant]
     Dosage: UNK, UNKNOWN
     Route: 065
  11. VITAMIN B6 [Concomitant]
     Dosage: UNK, UNKNOWN
     Route: 065
     Dates: start: 20080101

REACTIONS (4)
  - CEREBROVASCULAR ACCIDENT [None]
  - DYSAESTHESIA [None]
  - HYPOGLYCAEMIC SEIZURE [None]
  - SENSORIMOTOR DISORDER [None]
